FAERS Safety Report 10901166 (Version 1)
Quarter: 2015Q1

REPORT INFORMATION
  Report Type: Spontaneous
  Country: US (occurrence: US)
  Receive Date: 20150310
  Receipt Date: 20150310
  Transmission Date: 20150721
  Serious: Yes (Other)
  Sender: FDA-Public Use
  Company Number: US-RANBAXY-2013US-65544

PATIENT
  Age: 41 Year
  Sex: Male

DRUGS (5)
  1. ATAZANAVIR [Concomitant]
     Active Substance: ATAZANAVIR
     Indication: ANTIRETROVIRAL THERAPY
     Dosage: UNK
     Route: 065
  2. TENOFOVIR [Concomitant]
     Active Substance: TENOFOVIR
     Indication: ANTIRETROVIRAL THERAPY
     Dosage: UNK
     Route: 065
  3. RITONAVIR. [Suspect]
     Active Substance: RITONAVIR
     Indication: ANTIRETROVIRAL THERAPY
     Dosage: UNK
     Route: 065
  4. EMTRICITABINE [Concomitant]
     Active Substance: EMTRICITABINE
     Indication: ANTIRETROVIRAL THERAPY
     Dosage: UNK
     Route: 065
  5. TRIAMCINOLONE [Suspect]
     Active Substance: TRIAMCINOLONE
     Indication: PAIN
     Dosage: 80 MG, SINGLE
     Route: 008

REACTIONS (2)
  - Hypercorticoidism [Recovering/Resolving]
  - Drug interaction [Recovering/Resolving]
